FAERS Safety Report 4815889-1 (Version None)
Quarter: 2005Q4

REPORT INFORMATION
  Report Type: 
  Country: None (occurrence: None)
  Receive Date: 20051031
  Receipt Date: 20051024
  Transmission Date: 20060501
  Serious: Yes (Hospitalization)
  Sender: FDA-Public Use
  Company Number: US-JNJFOC-20030904439

PATIENT
  Sex: Female
  Weight: 56.7 kg

DRUGS (11)
  1. RISPERDAL [Suspect]
     Dosage: (RESTARTED ON AN UNSPECIFIED DATE)
     Route: 048
  2. RISPERDAL [Suspect]
     Dosage: (DECREASED DOSE, THEN DISCONTINUED)
     Route: 048
  3. RISPERDAL [Suspect]
     Route: 048
  4. RISPERDAL [Suspect]
     Route: 048
  5. RISPERDAL [Suspect]
     Dosage: (AT BEDTIME X 4 WEEKS)
     Route: 048
  6. RISPERDAL [Suspect]
     Dosage: (AT BEDTIME)
     Route: 048
  7. RISPERDAL [Suspect]
     Indication: BIPOLAR DISORDER
     Dosage: (TEMPORARILY ^RAN OUT^ IN AUG-1996)
     Route: 048
  8. EFFEXOR [Concomitant]
  9. WELLBUTRIN [Concomitant]
  10. ZOLOFT [Concomitant]
     Dosage: (WITH LUNCH)
  11. DESYREL [Concomitant]

REACTIONS (26)
  - AFFECT LABILITY [None]
  - ANXIETY [None]
  - ASTHENIA [None]
  - BALANCE DISORDER [None]
  - CONFUSIONAL STATE [None]
  - CONVULSION [None]
  - CRYING [None]
  - DEPRESSION [None]
  - DISTURBANCE IN ATTENTION [None]
  - DRY MOUTH [None]
  - DYSKINESIA [None]
  - DYSPHAGIA [None]
  - EATING DISORDER SYMPTOM [None]
  - FEAR [None]
  - HALLUCINATION, AUDITORY [None]
  - HOMICIDAL IDEATION [None]
  - INADEQUATE DIET [None]
  - INSOMNIA [None]
  - MOOD SWINGS [None]
  - MUSCLE SPASMS [None]
  - MUSCULOSKELETAL STIFFNESS [None]
  - SOCIAL PHOBIA [None]
  - SOMNOLENCE [None]
  - TARDIVE DYSKINESIA [None]
  - TREMOR [None]
  - VOMITING [None]
